FAERS Safety Report 13553524 (Version 1)
Quarter: 2017Q2

REPORT INFORMATION
  Report Type: Spontaneous
  Country: US (occurrence: US)
  Receive Date: 20170517
  Receipt Date: 20170517
  Transmission Date: 20170830
  Serious: No
  Sender: FDA-Public Use
  Company Number: US-BAYER-2017-093277

PATIENT
  Sex: Male
  Weight: 68 kg

DRUGS (2)
  1. ALKA-SELTZER PM [Suspect]
     Active Substance: ASPIRIN\DIPHENHYDRAMINE
     Dosage: UNK
  2. ALEVE [Suspect]
     Active Substance: NAPROXEN SODIUM
     Dosage: 2 DF, BID
     Route: 048

REACTIONS (1)
  - Drug ineffective [Unknown]
